FAERS Safety Report 13458115 (Version 1)
Quarter: 2017Q2

REPORT INFORMATION
  Report Type: Report from Study
  Country: US (occurrence: US)
  Receive Date: 20170419
  Receipt Date: 20170419
  Transmission Date: 20170830
  Serious: Yes (Other)
  Sender: FDA-Public Use
  Company Number: US-AMGEN-USASL2017055654

PATIENT
  Age: 84 Year
  Sex: Male

DRUGS (1)
  1. ENBREL [Suspect]
     Active Substance: ETANERCEPT
     Indication: RHEUMATOID ARTHRITIS
     Dosage: 50 MG, QWK
     Route: 065

REACTIONS (6)
  - Vasculitis [Recovering/Resolving]
  - Dysgeusia [Unknown]
  - Blood pressure increased [Unknown]
  - Loss of consciousness [Recovering/Resolving]
  - Blood pressure decreased [Recovering/Resolving]
  - Scab [Not Recovered/Not Resolved]

NARRATIVE: CASE EVENT DATE: 201703
